FAERS Safety Report 7074511-7 (Version None)
Quarter: 2010Q4

REPORT INFORMATION
  Report Type: 
  Country: None (occurrence: None)
  Receive Date: 20101029
  Receipt Date: 20101029
  Transmission Date: 20110411
  Serious: Yes (Other)
  Sender: FDA-Public Use
  Company Number: PHHO2010DE15676

PATIENT
  Sex: Male
  Weight: 83.5 kg

DRUGS (7)
  1. BLINDED FTY 720 FTY+CAP+MSC [Suspect]
     Dosage: DOUBLE BLIND
     Route: 048
     Dates: start: 20080930, end: 20100315
  2. BLINDED NO TREATMENT RECEIVED NOMED [Suspect]
     Dosage: DOUBLE BLIND
     Route: 048
     Dates: start: 20080930, end: 20100315
  3. BLINDED PLACEBO COMP-PLA+ [Suspect]
     Dosage: DOUBLE BLIND
     Route: 048
     Dates: start: 20080930, end: 20100315
  4. FTY [Suspect]
     Indication: MULTIPLE SCLEROSIS
     Dosage: 0.5MG
     Route: 048
     Dates: start: 20100315, end: 20101015
  5. TRILEPTAL [Concomitant]
     Indication: NEURALGIA
     Dosage: UNK
     Dates: start: 20070910
  6. GABAPENTIN [Concomitant]
     Indication: NEURALGIA
     Dosage: UNK
     Dates: start: 20070910
  7. AMITRIPTYLINE HCL [Concomitant]
     Indication: DEPRESSION
     Dosage: UNK
     Dates: start: 20100521

REACTIONS (4)
  - DYSPLASTIC NAEVUS SYNDROME [None]
  - MALIGNANT MELANOMA [None]
  - PAPILLOMA [None]
  - SKIN NEOPLASM EXCISION [None]
